FAERS Safety Report 10190236 (Version 2)
Quarter: 2014Q2

REPORT INFORMATION
  Report Type: Spontaneous
  Country: US (occurrence: US)
  Receive Date: 20140522
  Receipt Date: 20140605
  Transmission Date: 20141212
  Serious: Yes (Life-Threatening, Hospitalization, Other)
  Sender: FDA-Public Use
  Company Number: US-009507513-1405USA008286

PATIENT
  Age: 53 Year
  Sex: Female

DRUGS (9)
  1. ZOCOR [Suspect]
     Dosage: 40 MG, QD
     Route: 048
  2. FUROSEMIDE [Suspect]
     Dosage: 40 MG, UNK
     Route: 048
  3. PRINIVIL [Suspect]
     Dosage: 10 MG, QD
     Route: 048
  4. K-DUR [Suspect]
     Dosage: 20 MEQ, BID
     Route: 048
  5. SPIRONOLACTONE [Suspect]
     Dosage: 25 MG, BID
  6. CARVEDILOL [Suspect]
     Dosage: 25 MG, BID
  7. DIGOXIN [Suspect]
     Dosage: 0.125 MG, QD
  8. INSULIN [Suspect]
     Dosage: 40 UNITS EVERY AM, 25 UNITS EVERY PM
  9. FERROUS SULFATE [Suspect]
     Dosage: 325 MG, QD

REACTIONS (1)
  - Paralysis [Recovered/Resolved]
